FAERS Safety Report 13910839 (Version 1)
Quarter: 2017Q3

REPORT INFORMATION
  Report Type: Spontaneous
  Country: GB (occurrence: GB)
  Receive Date: 20170828
  Receipt Date: 20170828
  Transmission Date: 20171127
  Serious: Yes (Other)
  Sender: FDA-Public Use
  Company Number: GB-009507513-1708GBR011851

PATIENT
  Age: 51 Year

DRUGS (1)
  1. LOSARTAN POTASSIUM. [Suspect]
     Active Substance: LOSARTAN POTASSIUM

REACTIONS (3)
  - Blood potassium increased [Unknown]
  - Hypotension [Recovered/Resolved]
  - Drug dispensed to wrong patient [Unknown]

NARRATIVE: CASE EVENT DATE: 20170519
